FAERS Safety Report 11910219 (Version 1)
Quarter: 2016Q1

REPORT INFORMATION
  Report Type: Spontaneous
  Country: US (occurrence: US)
  Receive Date: 20160112
  Receipt Date: 20160112
  Transmission Date: 20160526
  Serious: No
  Sender: FDA-Public Use
  Company Number: US-PFIZER INC-2016002840

PATIENT
  Age: 81 Year
  Sex: Male
  Weight: 86.18 kg

DRUGS (1)
  1. SUTENT [Suspect]
     Active Substance: SUNITINIB MALATE
     Indication: RENAL CANCER
     Dosage: 50 MG, ALTERNATE DAY
     Dates: start: 201503

REACTIONS (2)
  - Bone disorder [Unknown]
  - Upper limb fracture [Unknown]
